FAERS Safety Report 7969281-1 (Version None)
Quarter: 2011Q4

REPORT INFORMATION
  Report Type: 
  Country: None (occurrence: None)
  Receive Date: 20111209
  Receipt Date: 20111206
  Transmission Date: 20120403
  Serious: Yes (Hospitalization, Other)
  Sender: FDA-Public Use
  Company Number: FR-ROCHE-751450

PATIENT
  Sex: Female
  Weight: 71 kg

DRUGS (9)
  1. AVASTIN [Suspect]
     Indication: GLIOBLASTOMA
     Dosage: DATE OF LAST DOSE PRIOR TO SAE: 05 JANUARY 2011, CUMULATIVE DOSE ADMINISTERED: 3550 MG.INTERRUPTED
     Route: 042
  2. PROPRANOLOL [Concomitant]
     Indication: TACHYCARDIA
     Route: 048
  3. DEPAKENE [Concomitant]
     Indication: EPILEPSY
     Route: 042
  4. IRINOTECAN HYDROCHLORIDE [Suspect]
     Indication: GLIOBLASTOMA
     Dosage: DATE OF LAST DOSE PRIOR TO SAE: 22 NOVEMBER 2010, CUMULATIVE DOSE ADMINISTERED: 840 MG.
     Route: 042
  5. SOLU-MEDROL [Concomitant]
     Indication: INTRACRANIAL PRESSURE INCREASED
     Route: 042
  6. MANNITOL [Concomitant]
     Indication: INTRACRANIAL PRESSURE INCREASED
     Route: 042
  7. TEMOZOLOMIDE [Suspect]
     Indication: GLIOBLASTOMA
     Dosage: DATE OF LAST DOSE PRIOR TO SAE: 14 JANUARY 2011, CUMULATIVE DOSE ADMINISTERED: 1300 MG
     Route: 048
  8. MEDROL [Concomitant]
     Indication: OEDEMA
     Route: 048
  9. NEXIUM [Concomitant]
     Indication: PROPHYLAXIS
     Route: 048

REACTIONS (2)
  - INTRA-ABDOMINAL HAEMATOMA [None]
  - PARTIAL SEIZURES [None]
